FAERS Safety Report 11701641 (Version 3)
Quarter: 2015Q4

REPORT INFORMATION
  Report Type: Spontaneous
  Country: US (occurrence: US)
  Receive Date: 20151105
  Receipt Date: 20151216
  Transmission Date: 20160304
  Serious: Yes (Life-Threatening, Hospitalization)
  Sender: FDA-Public Use
  Company Number: US-ACTELION-A-US2015-118110

PATIENT
  Age: 65 Year
  Sex: Male

DRUGS (7)
  1. GABAPENTIN. [Concomitant]
     Active Substance: GABAPENTIN
     Dosage: 400 MG, TID
  2. ATORVASTATIN [Concomitant]
     Active Substance: ATORVASTATIN
     Dosage: 40 MG, QD
  3. GLYBURIDE. [Concomitant]
     Active Substance: GLYBURIDE
     Dosage: 5 MG, BID
  4. OPSUMIT [Suspect]
     Active Substance: MACITENTAN
     Indication: PULMONARY HYPERTENSION
     Dosage: 10 MG, QD
     Route: 048
     Dates: start: 201503
  5. CARVEDILOL. [Concomitant]
     Active Substance: CARVEDILOL
     Dosage: 6.25 MG, BID
  6. JANUMET [Concomitant]
     Active Substance: METFORMIN HYDROCHLORIDE\SITAGLIPTIN PHOSPHATE
     Dosage: UNK
  7. ASPIRIN. [Concomitant]
     Active Substance: ASPIRIN
     Dosage: 81 MG, QD

REACTIONS (4)
  - Pneumonia [Recovered/Resolved]
  - Oxygen saturation decreased [Unknown]
  - Dyspnoea [Recovered/Resolved]
  - Acute respiratory failure [Unknown]

NARRATIVE: CASE EVENT DATE: 20151025
